FAERS Safety Report 5788559-3 (Version None)
Quarter: 2008Q2

REPORT INFORMATION
  Report Type: 
  Country: None (occurrence: None)
  Receive Date: 20080626
  Receipt Date: 20080613
  Transmission Date: 20081010
  Serious: Yes (Death)
  Sender: FDA-Public Use
  Company Number: TW-ELI_LILLY_AND_COMPANY-TW200806002923

PATIENT
  Sex: Male

DRUGS (6)
  1. ZYPREXA [Suspect]
     Indication: SCHIZOPHRENIA
     Dosage: 10 MG, DAILY (1/D)
     Route: 048
     Dates: start: 20071026
  2. INDERAL [Concomitant]
     Dosage: 10 MG, 2/D
     Dates: start: 20071026
  3. CLONAZEPAM [Concomitant]
     Dosage: 2 MG, DAILY (1/D)
     Dates: start: 20080307
  4. FLUZEPAM [Concomitant]
     Dosage: 4 MG, DAILY (1/D)
     Dates: start: 20080307
  5. ZOPICLONE [Concomitant]
     Dosage: 15 MG, 2/D
     Dates: start: 20070518, end: 20080306
  6. MIRTAZAPINE [Concomitant]
     Dosage: 30 MG, DAILY (1/D)
     Dates: start: 20080328

REACTIONS (9)
  - AGGRESSION [None]
  - CARDIAC DISORDER [None]
  - CARDIOGENIC SHOCK [None]
  - DELUSION [None]
  - DEPRESSION [None]
  - HALLUCINATION [None]
  - INSOMNIA [None]
  - SOCIAL AVOIDANT BEHAVIOUR [None]
  - SUICIDAL IDEATION [None]
